FAERS Safety Report 20469216 (Version 1)
Quarter: 2022Q1

REPORT INFORMATION
  Report Type: Spontaneous
  Country: US (occurrence: None)
  Receive Date: 20220212
  Receipt Date: 20220212
  Transmission Date: 20220423
  Serious: Yes (Other)
  Sender: FDA-Public Use
  Company Number: None

PATIENT
  Age: 53 Year
  Sex: Female
  Weight: 58.5 kg

DRUGS (5)
  1. CLINDAMYCIN HYDROCHLORIDE [Suspect]
     Active Substance: CLINDAMYCIN HYDROCHLORIDE
     Indication: Tooth extraction
     Dosage: FREQUENCY : EVERY 8 HOURS;?
     Route: 048
     Dates: start: 20220204, end: 20220210
  2. ROSUVASTATIN [Concomitant]
     Active Substance: ROSUVASTATIN
  3. MULTI-VITAMIN [Concomitant]
     Active Substance: .ALPHA.-TOCOPHEROL ACETATE, DL-\ASCORBIC ACID\CYANOCOBALAMIN\FLUORIDE ION\FOLIC ACID\NIACIN\PYRIDOXI
  4. CALCIUM [Concomitant]
     Active Substance: CALCIUM
  5. Q-10 [Concomitant]

REACTIONS (12)
  - Product physical issue [None]
  - Product physical consistency issue [None]
  - Foreign body in throat [None]
  - Oesophageal pain [None]
  - Chest pain [None]
  - Foreign body in throat [None]
  - Hiccups [None]
  - Gastrooesophageal reflux disease [None]
  - Oesophageal ulcer [None]
  - Product leakage [None]
  - Oesophagitis [None]
  - Product quality issue [None]

NARRATIVE: CASE EVENT DATE: 20220209
